FAERS Safety Report 6894489-6 (Version None)
Quarter: 2010Q3

REPORT INFORMATION
  Report Type: 
  Country: None (occurrence: None)
  Receive Date: 20100802
  Receipt Date: 20100701
  Transmission Date: 20110219
  Serious: No
  Sender: FDA-Public Use
  Company Number: US-BAYER-201017808BCC

PATIENT
  Sex: Female

DRUGS (1)
  1. ALEVE [Suspect]
     Indication: PRODUCT USED FOR UNKNOWN INDICATION
     Route: 048
     Dates: start: 20100701

REACTIONS (2)
  - ADVERSE EVENT [None]
  - DIARRHOEA [None]
